FAERS Safety Report 9018816 (Version 2)
Quarter: 2013Q1

REPORT INFORMATION
  Report Type: Spontaneous
  Country: DK (occurrence: DK)
  Receive Date: 20130118
  Receipt Date: 20130212
  Transmission Date: 20140127
  Serious: Yes (Hospitalization)
  Sender: FDA-Public Use
  Company Number: DK-NAPPMUNDI-GBR-2013-0012510

PATIENT
  Age: 39 Year
  Sex: Female

DRUGS (2)
  1. OXYNORM [Suspect]
     Indication: NECK PAIN
     Dosage: 10 MG, SINGLE
     Route: 048
     Dates: start: 20130104
  2. GABAPENTIN [Concomitant]
     Dosage: 900 MG, QID
     Dates: start: 201111

REACTIONS (10)
  - Loss of consciousness [Recovered/Resolved]
  - Muscle spasms [Recovered/Resolved]
  - Malaise [Recovered/Resolved]
  - Cyanosis [Recovered/Resolved]
  - Vision blurred [Recovered/Resolved]
  - Crying [Recovered/Resolved]
  - Fear [Recovered/Resolved]
  - Dizziness [Recovered/Resolved]
  - Pruritus [Recovered/Resolved]
  - Nausea [Recovered/Resolved]
